FAERS Safety Report 10925688 (Version 1)
Quarter: 2015Q1

REPORT INFORMATION
  Report Type: Spontaneous
  Country: None (occurrence: None)
  Receive Date: 20150316
  Receipt Date: 20150316
  Transmission Date: 20150721
  Serious: No
  Sender: FDA-Public Use
  Company Number: None

PATIENT
  Sex: Female
  Weight: 56 kg

DRUGS (1)
  1. NEXPLANON [Suspect]
     Active Substance: ETONOGESTREL
     Dates: start: 20120328

REACTIONS (6)
  - Skin discolouration [None]
  - Seborrhoea [None]
  - Libido decreased [None]
  - Menstrual disorder [None]
  - Scar [None]
  - Headache [None]
